FAERS Safety Report 4684930-1 (Version None)
Quarter: 2005Q2

REPORT INFORMATION
  Report Type: 
  Country: None (occurrence: None)
  Receive Date: 20050606
  Receipt Date: 20050606
  Transmission Date: 20051028
  Serious: Yes (Hospitalization)
  Sender: FDA-Public Use
  Company Number: None

PATIENT
  Sex: Male
  Weight: 79.8331 kg

DRUGS (3)
  1. TERAZOSIN [Suspect]
     Indication: PROSTATIC DISORDER
     Dosage: 10 MG 1 CAP HS
     Dates: start: 20040507, end: 20050227
  2. METOPROLOL [Suspect]
     Indication: BLOOD PRESSURE
     Dosage: 100 MG 1 TAB BID
     Dates: start: 20041108
  3. METOPROLOL [Suspect]
     Indication: CARDIAC DISORDER
     Dosage: 100 MG 1 TAB BID
     Dates: start: 20041108

REACTIONS (2)
  - FATIGUE [None]
  - SYNCOPE [None]
